FAERS Safety Report 24146978 (Version 1)
Quarter: 2024Q3

REPORT INFORMATION
  Report Type: Report from Study
  Country: ES (occurrence: ES)
  Receive Date: 20240729
  Receipt Date: 20240729
  Transmission Date: 20241017
  Serious: Yes (Other)
  Sender: TEVA
  Company Number: None

PATIENT
  Age: 77 Year
  Sex: Female

DRUGS (9)
  1. PAROXETINE [Suspect]
     Active Substance: PAROXETINE
     Indication: Affective disorder
     Dosage: 1 TABLET/24H, PAROXETINE (2586A)
     Route: 048
     Dates: start: 20231103, end: 20231210
  2. CHOLECALCIFEROL [Concomitant]
     Active Substance: CHOLECALCIFEROL
     Indication: Product used for unknown indication
     Dosage: 1 DOSE/24H, ORAL SOLUTION/SUSPENSION 2 SINGLE-DOSE CONTAINERS
     Route: 048
     Dates: end: 20240501
  3. LACTULOSE [Concomitant]
     Active Substance: LACTULOSE
     Indication: Product used for unknown indication
     Dosage: 1 SACHET /24H, LACTULOSE (1821A)
     Route: 048
     Dates: end: 20240312
  4. METFORMIN [Concomitant]
     Active Substance: METFORMIN HYDROCHLORIDE
     Indication: Product used for unknown indication
     Dosage: 1 TABLET/24H, METFORMIN (1359A)
     Route: 048
     Dates: end: 20231213
  5. IRON PROTEINSUCCINYLATE [Concomitant]
     Indication: Product used for unknown indication
     Dosage: 1 AMPOULE /24HIRON PROTEINSUCCINYLATE (2445A)
     Route: 048
     Dates: end: 20240201
  6. BROMAZEPAM [Concomitant]
     Active Substance: BROMAZEPAM
     Indication: Product used for unknown indication
     Dosage: BROMAZEPAM (510A)
     Route: 048
     Dates: start: 20220405, end: 20240312
  7. ACETAMINOPHEN [Concomitant]
     Active Substance: ACETAMINOPHEN
     Indication: Product used for unknown indication
     Dosage: 1 TABLET/24H, PARACETAMOL (12A)
     Route: 048
     Dates: start: 20220405
  8. ASPIRIN [Concomitant]
     Active Substance: ASPIRIN
     Indication: Product used for unknown indication
     Dosage: 1 TABLET/24H?ACETYLSALICYLIC ACID (176A)
     Route: 048
     Dates: start: 20220622, end: 20231213
  9. FAMOTIDINE [Concomitant]
     Active Substance: FAMOTIDINE
     Indication: Product used for unknown indication
     Dosage: 1 TABLET/24H, FAMOTIDINE (2100A)
     Route: 048
     Dates: end: 20231213

REACTIONS (1)
  - Hyponatraemia [Recovered/Resolved]

NARRATIVE: CASE EVENT DATE: 20231204
